FAERS Safety Report 9675357 (Version 1)
Quarter: 2013Q4

REPORT INFORMATION
  Report Type: Spontaneous
  Country: US (occurrence: US)
  Receive Date: 20131107
  Receipt Date: 20131107
  Transmission Date: 20140711
  Serious: No
  Sender: FDA-Public Use
  Company Number: US-PFIZER INC-2013317448

PATIENT
  Age: 58 Year
  Sex: Male
  Weight: 89.8 kg

DRUGS (3)
  1. EFFEXOR XR [Suspect]
     Indication: ANXIETY
     Dosage: 75 MG, 1X/DAY
     Dates: end: 2013
  2. EFFEXOR XR [Suspect]
     Indication: DEPRESSION
  3. EFFEXOR XR [Suspect]
     Indication: PANIC ATTACK

REACTIONS (1)
  - Rash [Not Recovered/Not Resolved]
